FAERS Safety Report 12238990 (Version 4)
Quarter: 2016Q2

REPORT INFORMATION
  Report Type: Report from Study
  Country: US (occurrence: US)
  Receive Date: 20160405
  Receipt Date: 20160525
  Transmission Date: 20160815
  Serious: Yes (Hospitalization)
  Sender: FDA-Public Use
  Company Number: US-MALLINCKRODT-T201601049

PATIENT
  Age: 59 Year
  Sex: Male
  Weight: 111 kg

DRUGS (11)
  1. MINOXIDIL. [Concomitant]
     Active Substance: MINOXIDIL
  2. CLONIDINE. [Concomitant]
     Active Substance: CLONIDINE
  3. LASIX [Concomitant]
     Active Substance: FUROSEMIDE
  4. SPIRONOLACTONE. [Concomitant]
     Active Substance: SPIRONOLACTONE
  5. CRESTOR [Concomitant]
     Active Substance: ROSUVASTATIN CALCIUM
  6. REPOSITORY CORTICOTROPIN INJECTION [Suspect]
     Active Substance: CORTICOTROPIN
     Indication: PROTEINURIA
     Dosage: UNKNOWN DOSE/FREQUENCY
     Route: 065
     Dates: start: 20160218, end: 20160319
  7. REPOSITORY CORTICOTROPIN INJECTION [Suspect]
     Active Substance: CORTICOTROPIN
     Dosage: 80 UNITS TWICE WKLY (TUE/THURS)
     Route: 058
     Dates: start: 20160414
  8. REPOSITORY CORTICOTROPIN INJECTION [Suspect]
     Active Substance: CORTICOTROPIN
     Indication: NEPHROTIC SYNDROME
     Dosage: UNKNOWN DOSE/FREQUENCY
     Route: 065
     Dates: start: 201603, end: 201603
  9. ISOSORBIDE MONONITRATE. [Concomitant]
     Active Substance: ISOSORBIDE MONONITRATE
     Dosage: EXTENDED RELEASE
  10. CARVEDILOL. [Concomitant]
     Active Substance: CARVEDILOL
     Dosage: 25 MG
  11. DILTIAZEM [Concomitant]
     Active Substance: DILTIAZEM
     Dosage: 60 MG

REACTIONS (2)
  - Renal disorder [Not Recovered/Not Resolved]
  - Unevaluable event [Not Recovered/Not Resolved]

NARRATIVE: CASE EVENT DATE: 20160315
